FAERS Safety Report 25149551 (Version 2)
Quarter: 2025Q2

REPORT INFORMATION
  Report Type: Report from Study
  Country: US (occurrence: US)
  Receive Date: 20250402
  Receipt Date: 20250424
  Transmission Date: 20250716
  Serious: Yes (Other)
  Sender: GILEAD
  Company Number: US-GILEAD-2025-0709169

PATIENT
  Age: 25 Year
  Sex: Female

DRUGS (31)
  1. AZTREONAM LYSINE [Suspect]
     Active Substance: AZTREONAM LYSINE
     Indication: Cystic fibrosis
     Dosage: 75 MG, TID (28 DAYS ON AND 28 DAYS OFF)
     Route: 055
  2. AZTREONAM LYSINE [Suspect]
     Active Substance: AZTREONAM LYSINE
     Indication: Pseudomonas infection
  3. PULMOZYME [Concomitant]
     Active Substance: DORNASE ALFA
  4. BACTRIM [Concomitant]
     Active Substance: SULFAMETHOXAZOLE\TRIMETHOPRIM
  5. BACTRIM [Concomitant]
     Active Substance: SULFAMETHOXAZOLE\TRIMETHOPRIM
  6. FLUCONAZOLE [Concomitant]
     Active Substance: FLUCONAZOLE
  7. DIETARY SUPPLEMENT [Concomitant]
     Active Substance: DIETARY SUPPLEMENT
  8. POTASSIUM CITRATE\SODIUM CITRATE\ZINC [Concomitant]
     Active Substance: POTASSIUM CITRATE\SODIUM CITRATE\ZINC
  9. CHILDRENS TYLENOL [Concomitant]
     Active Substance: ACETAMINOPHEN
  10. CALCIUM [Concomitant]
     Active Substance: CALCIUM
  11. CALCIUM [Concomitant]
     Active Substance: CALCIUM
  12. CLONIDINE [Concomitant]
     Active Substance: CLONIDINE
  13. SYNTHROID [Concomitant]
     Active Substance: LEVOTHYROXINE SODIUM
  14. SYNTHROID [Concomitant]
     Active Substance: LEVOTHYROXINE SODIUM
  15. DIASTAT [ATROPA BELLA-DONNA TINCTURE;CHLOROFORM AND MORPHINE TINCTURE; [Concomitant]
  16. DIAZEPAM [Concomitant]
     Active Substance: DIAZEPAM
  17. DIAZEPAM [Concomitant]
     Active Substance: DIAZEPAM
  18. BANZEL [Concomitant]
     Active Substance: RUFINAMIDE
  19. BANZEL [Concomitant]
     Active Substance: RUFINAMIDE
  20. KEPPRA [Concomitant]
     Active Substance: LEVETIRACETAM
  21. CLONAZEPAM [Concomitant]
     Active Substance: CLONAZEPAM
  22. POLYETHYLENE GLYCOLS [Concomitant]
     Active Substance: POLYETHYLENE GLYCOLS
  23. WAL DRYL [Concomitant]
  24. MELATONIN [Concomitant]
     Active Substance: MELATONIN
  25. NAC [DICLOFENAC SODIUM] [Concomitant]
  26. SINGULAIR [Concomitant]
     Active Substance: MONTELUKAST SODIUM
  27. XOPENEX [Concomitant]
     Active Substance: LEVALBUTEROL HYDROCHLORIDE
  28. PULMICORT TURBUHALER [Concomitant]
     Active Substance: BUDESONIDE
  29. TOBI [Concomitant]
     Active Substance: TOBRAMYCIN
  30. BETHKIS [Concomitant]
     Active Substance: TOBRAMYCIN
  31. ONE DAILY WOMEN^S [MINERALS NOS;VACCINIUM SPP.;VITAMINS NOS] [Concomitant]

REACTIONS (1)
  - Pneumonia [Unknown]

NARRATIVE: CASE EVENT DATE: 20250301
